FAERS Safety Report 8721162 (Version 2)
Quarter: 2012Q4

REPORT INFORMATION
  Report Type: 
  Country: DE (occurrence: DE)
  Receive Date: 20120813
  Receipt Date: 20120911
  Transmission Date: 20130627
  Serious: Yes (Life-Threatening, Hospitalization, Disabling)
  Sender: FDA-Public Use
  Company Number: DE-JNJFOC-20120805680

PATIENT
  Age: 80 Year
  Sex: Female
  Weight: 85 kg

DRUGS (6)
  1. XARELTO [Suspect]
     Indication: EMBOLISM VENOUS
     Route: 048
     Dates: start: 20120623
  2. XARELTO [Suspect]
     Indication: PULMONARY EMBOLISM
     Route: 048
     Dates: start: 20120623
  3. BISOPROLOL [Concomitant]
  4. RAMIPRIL [Concomitant]
  5. KEPPRA [Concomitant]
  6. AMLODIPINE [Concomitant]

REACTIONS (1)
  - Cerebral ischaemia [Not Recovered/Not Resolved]
